FAERS Safety Report 7393780-7 (Version None)
Quarter: 2011Q2

REPORT INFORMATION
  Report Type: 
  Country: None (occurrence: None)
  Receive Date: 20110405
  Receipt Date: 20110328
  Transmission Date: 20111010
  Serious: Yes (Life-Threatening, Hospitalization)
  Sender: FDA-Public Use
  Company Number: FR-ELI_LILLY_AND_COMPANY-FR201103007522

PATIENT
  Sex: Male

DRUGS (4)
  1. ACTISKENAN [Concomitant]
     Dosage: 20 DF, QD
     Route: 048
     Dates: start: 20110108, end: 20110108
  2. STILNOX [Concomitant]
     Dosage: 14 DF, QD
     Route: 048
     Dates: start: 20110108, end: 20110108
  3. ZYPREXA [Suspect]
     Dosage: 140 MG, QD
     Route: 048
     Dates: start: 20110108, end: 20110108
  4. EFFEXOR [Concomitant]
     Dosage: 10 DF, QD
     Route: 048
     Dates: start: 20110108, end: 20110108

REACTIONS (6)
  - INTENTIONAL OVERDOSE [None]
  - SINUS BRADYCARDIA [None]
  - COMA [None]
  - ENDOTRACHEAL INTUBATION [None]
  - PNEUMONIA ASPIRATION [None]
  - RENAL FAILURE [None]
